FAERS Safety Report 25077498 (Version 1)
Quarter: 2025Q1

REPORT INFORMATION
  Report Type: Spontaneous
  Country: US (occurrence: US)
  Receive Date: 20250314
  Receipt Date: 20250314
  Transmission Date: 20250409
  Serious: No
  Sender: Haleon PLC
  Company Number: US-HALEON-2232875

PATIENT

DRUGS (2)
  1. SENSODYNE PRONAMEL CLINICAL ENAMEL STRENGTH WHITENING ACTION [Suspect]
     Active Substance: POTASSIUM NITRATE\SODIUM FLUORIDE
     Indication: Tooth whitening
  2. SENSODYNE PRONAMEL CLINICAL ENAMEL STRENGTH WHITENING ACTION [Suspect]
     Active Substance: POTASSIUM NITRATE\SODIUM FLUORIDE
     Indication: Dental caries

REACTIONS (1)
  - Drug ineffective [Unknown]
